FAERS Safety Report 15814922 (Version 1)
Quarter: 2019Q1

REPORT INFORMATION
  Report Type: Spontaneous
  Country: FR (occurrence: FR)
  Receive Date: 20190111
  Receipt Date: 20190111
  Transmission Date: 20190417
  Serious: Yes (Life-Threatening)
  Sender: FDA-Public Use
  Company Number: FR-ACCORD-101553

PATIENT
  Age: 67 Year
  Sex: Female
  Weight: 81.3 kg

DRUGS (6)
  1. CORGARD [Suspect]
     Active Substance: NADOLOL
     Indication: ATRIAL FIBRILLATION
     Route: 048
     Dates: start: 20171118, end: 20171121
  2. VALSARTAN. [Suspect]
     Active Substance: VALSARTAN
     Indication: HYPERTENSION
     Route: 048
     Dates: start: 20171118, end: 20171129
  3. BUDESONIDE. [Concomitant]
     Active Substance: BUDESONIDE
     Dosage: BUDESONIDE + FORMOTEROL 400/12
  4. FORMOTEROL/FORMOTEROL FUMARATE [Concomitant]
  5. COUMADINE [Concomitant]
     Active Substance: WARFARIN SODIUM
  6. FUROSEMIDE. [Suspect]
     Active Substance: FUROSEMIDE
     Indication: HYPERTENSION
     Route: 048
     Dates: end: 20171129

REACTIONS (3)
  - Acute kidney injury [Recovered/Resolved]
  - Dehydration [Recovered/Resolved]
  - Vomiting [Recovered/Resolved]

NARRATIVE: CASE EVENT DATE: 20171121
